FAERS Safety Report 7535411-9 (Version None)
Quarter: 2011Q2

REPORT INFORMATION
  Report Type: 
  Country: None (occurrence: None)
  Receive Date: 20110609
  Receipt Date: 20071117
  Transmission Date: 20111010
  Serious: Yes (Death, Hospitalization)
  Sender: FDA-Public Use
  Company Number: PHFR2007IE01517

PATIENT
  Sex: Male

DRUGS (10)
  1. FRUMIL [Concomitant]
     Dosage: 1 UNK, QD
     Route: 048
  2. LANSOPRAZOLE [Concomitant]
     Dosage: 30 MG, UNK
     Route: 048
  3. CLOZAPINE [Suspect]
     Dosage: 375MG/DAY
     Route: 048
  4. ASPIRIN [Concomitant]
     Dosage: 75 MG, BID
     Route: 048
  5. HYOSCINE [Concomitant]
     Dosage: 600 UG, UNK
     Route: 048
  6. FRESUBIN [Concomitant]
     Dosage: 1 UNK, BID
     Route: 048
  7. LANSOPRAZOLE [Concomitant]
     Dosage: 30 MG, QD
     Route: 048
  8. KWELLS [Concomitant]
     Dosage: 300 UG, BID
     Route: 048
  9. CLOZAPINE [Suspect]
     Indication: SCHIZOPHRENIA
     Dosage: 300 MG, UNK
     Route: 048
     Dates: start: 20070328
  10. HALOPERIDOL [Concomitant]
     Dosage: 5 MG, QID
     Route: 048

REACTIONS (7)
  - DISORIENTATION [None]
  - MALAISE [None]
  - PNEUMONIA ASPIRATION [None]
  - WHITE BLOOD CELL COUNT INCREASED [None]
  - PYREXIA [None]
  - NEUTROPHIL COUNT INCREASED [None]
  - DEATH [None]
